FAERS Safety Report 10583373 (Version 1)
Quarter: 2014Q4

REPORT INFORMATION
  Report Type: Spontaneous
  Country: US (occurrence: None)
  Receive Date: 20141112
  Receipt Date: 20141112
  Transmission Date: 20150529
  Serious: Yes (Other)
  Sender: FDA-Public Use
  Company Number: ADR-2014-02073

PATIENT
  Age: 72 Year
  Sex: Male

DRUGS (3)
  1. FENTANYL INTRATHECAL [Suspect]
     Active Substance: FENTANYL
     Indication: MUSCLE SPASTICITY
  2. BACLOFEN INTRATHECAL [Suspect]
     Active Substance: BACLOFEN
     Indication: MUSCLE SPASTICITY
  3. COUMADIN [Suspect]
     Active Substance: WARFARIN SODIUM

REACTIONS (3)
  - Incision site haematoma [None]
  - Incision site vesicles [None]
  - Medical device complication [None]

NARRATIVE: CASE EVENT DATE: 20140822
